FAERS Safety Report 9513051 (Version 1)
Quarter: 2013Q3

REPORT INFORMATION
  Report Type: Spontaneous
  Country: US (occurrence: US)
  Receive Date: 20130910
  Receipt Date: 20130910
  Transmission Date: 20140515
  Serious: No
  Sender: FDA-Public Use
  Company Number: US-PFIZER INC-2013256462

PATIENT
  Age: 51 Year
  Sex: Female
  Weight: 72.56 kg

DRUGS (2)
  1. LEVOXYL [Suspect]
     Indication: HYPOTHYROIDISM
     Dosage: 25 UG, 1X/DAY
     Route: 048
     Dates: start: 200508
  2. LEVOXYL [Suspect]
     Dosage: 200 UG, 1X/DAY
     Route: 048
     Dates: end: 200711

REACTIONS (7)
  - Dyspnoea [Recovering/Resolving]
  - Heart rate increased [Recovering/Resolving]
  - Panic attack [Recovering/Resolving]
  - Nightmare [Recovering/Resolving]
  - Hyperacusis [Recovering/Resolving]
  - Asthenia [Recovering/Resolving]
  - Tremor [Recovering/Resolving]
